FAERS Safety Report 5290521-4 (Version None)
Quarter: 2007Q2

REPORT INFORMATION
  Report Type: 
  Country: None (occurrence: None)
  Receive Date: 20070409
  Receipt Date: 20070326
  Transmission Date: 20071010
  Serious: Yes (Other)
  Sender: FDA-Public Use
  Company Number: PHEH2007US03568

PATIENT
  Sex: Male

DRUGS (2)
  1. ZOMETA [Suspect]
  2. AREDIA [Suspect]
     Route: 065

REACTIONS (2)
  - FALL [None]
  - FEMUR FRACTURE [None]
